FAERS Safety Report 6119250-1 (Version None)
Quarter: 2009Q1

REPORT INFORMATION
  Report Type: 
  Country: None (occurrence: None)
  Receive Date: 20090316
  Receipt Date: 20090306
  Transmission Date: 20090719
  Serious: Yes (Other)
  Sender: FDA-Public Use
  Company Number: US-ELI_LILLY_AND_COMPANY-US200903001731

PATIENT
  Sex: Female

DRUGS (1)
  1. GEMZAR [Suspect]

REACTIONS (1)
  - LABORATORY TEST ABNORMAL [None]
